FAERS Safety Report 6079631-1 (Version None)
Quarter: 2009Q1

REPORT INFORMATION
  Report Type: 
  Country: None (occurrence: None)
  Receive Date: 20090217
  Receipt Date: 20090210
  Transmission Date: 20090719
  Serious: Yes (Other)
  Sender: FDA-Public Use
  Company Number: GB-WYE-G03093509

PATIENT
  Sex: Male

DRUGS (1)
  1. EFFEXOR [Suspect]
     Dosage: UNKNOWN

REACTIONS (3)
  - AGGRESSION [None]
  - ALCOHOLISM [None]
  - PHYSICAL ASSAULT [None]
